FAERS Safety Report 8934400 (Version 1)
Quarter: 2012Q4

REPORT INFORMATION
  Report Type: Report from Study
  Country: JP (occurrence: JP)
  Receive Date: 20121129
  Receipt Date: 20121129
  Transmission Date: 20130627
  Serious: Yes (Other)
  Sender: FDA-Public Use
  Company Number: JP-VERTEX PHARMACEUTICAL INC.-2012-025227

PATIENT
  Age: 69 Year
  Sex: Female

DRUGS (8)
  1. VX-950 (TELAPREVIR) [Suspect]
     Indication: CHRONIC HEPATITIS C
     Dosage: 1500 mg, qd
     Route: 048
     Dates: start: 20120821, end: 20121016
  2. RIBAVIRIN [Concomitant]
     Dosage: 600 mg, qd
     Route: 048
     Dates: start: 20120821, end: 20120918
  3. RIBAVIRIN [Concomitant]
     Dosage: 400 mg, qd
     Route: 048
     Dates: start: 20120919
  4. RIBAVIRIN [Concomitant]
     Dosage: 600 mg, qd
     Route: 048
     Dates: end: 20121016
  5. PEGINTERFERON ALFA-2B [Concomitant]
     Dosage: 1.5 ?g/kg, qw
     Route: 058
     Dates: start: 20120821, end: 20121016
  6. OLMETEC [Concomitant]
     Dosage: 20 mg, qd
     Route: 048
  7. CALBLOCK [Concomitant]
     Dosage: 16 mg, qd
     Route: 048
  8. NESINA [Concomitant]
     Dosage: 25 mg, qd
     Route: 048

REACTIONS (2)
  - Drug eruption [Recovered/Resolved]
  - Anaemia [Not Recovered/Not Resolved]
